FAERS Safety Report 5707690-1 (Version None)
Quarter: 2008Q2

REPORT INFORMATION
  Report Type: 
  Country: None (occurrence: None)
  Receive Date: 20080416
  Receipt Date: 20080404
  Transmission Date: 20081010
  Serious: Yes (Other)
  Sender: FDA-Public Use
  Company Number: FR-PFIZER INC-2008031514

PATIENT
  Age: 40 Year
  Sex: Female

DRUGS (5)
  1. CHAMPIX [Suspect]
  2. KEPPRA [Concomitant]
  3. LAMICTAL [Concomitant]
  4. ANTIHYPERTENSIVES [Concomitant]
  5. STILNOX [Concomitant]

REACTIONS (1)
  - EPILEPSY [None]
